FAERS Safety Report 6030937-1 (Version None)
Quarter: 2009Q1

REPORT INFORMATION
  Report Type: 
  Country: None (occurrence: None)
  Receive Date: 20090106
  Receipt Date: 20081119
  Transmission Date: 20090719
  Serious: Yes (Death)
  Sender: FDA-Public Use
  Company Number: KV200800322

PATIENT
  Age: 54 Year
  Sex: Male

DRUGS (1)
  1. MORPHINE SULFATE [Suspect]
     Indication: PAIN
     Dosage: 100 MG, TID, ORAL
     Route: 048
     Dates: start: 20081028, end: 20081031

REACTIONS (2)
  - ARRHYTHMIA [None]
  - CARDIOMEGALY [None]
